FAERS Safety Report 7945024-2 (Version None)
Quarter: 2011Q4

REPORT INFORMATION
  Report Type: 
  Country: None (occurrence: None)
  Receive Date: 20111129
  Receipt Date: 20101019
  Transmission Date: 20120403
  Serious: No
  Sender: FDA-Public Use
  Company Number: US-MYLANLABS-2010S1019414

PATIENT
  Age: 95 Year
  Sex: Female

DRUGS (5)
  1. METOPROLOL TARTRATE [Concomitant]
  2. ALLOPURINOL TAB [Suspect]
     Indication: GOUT
     Route: 048
     Dates: start: 20101013
  3. ALLOPURINOL TAB [Interacting]
     Route: 048
     Dates: end: 20101018
  4. ASPIRIN [Interacting]
     Route: 048
     Dates: start: 20030101
  5. CARDIZEM [Concomitant]

REACTIONS (3)
  - NAUSEA [None]
  - DRUG INTERACTION [None]
  - VOMITING [None]
